FAERS Safety Report 6385974-4 (Version None)
Quarter: 2009Q4

REPORT INFORMATION
  Report Type: 
  Country: None (occurrence: None)
  Receive Date: 20091002
  Receipt Date: 20090306
  Transmission Date: 20100525
  Serious: No
  Sender: FDA-Public Use
  Company Number: US-ASTRAZENECA-2009UW05984

PATIENT
  Age: 60 Year
  Sex: Female

DRUGS (1)
  1. ARIMIDEX [Suspect]
     Dosage: UNKNOWN
     Route: 048

REACTIONS (5)
  - ARTHRALGIA [None]
  - ATROPHIC VULVOVAGINITIS [None]
  - BONE PAIN [None]
  - INSOMNIA [None]
  - VAGINAL DISCHARGE [None]
